FAERS Safety Report 16689160 (Version 1)
Quarter: 2019Q3

REPORT INFORMATION
  Report Type: Report from Study
  Country: None (occurrence: US)
  Receive Date: 20190809
  Receipt Date: 20190809
  Transmission Date: 20191004
  Serious: Yes (Other)
  Sender: FDA-Public Use
  Company Number: US-ABBVIE-19K-163-2877084-00

PATIENT
  Sex: Female

DRUGS (1)
  1. ORILISSA [Suspect]
     Active Substance: ELAGOLIX SODIUM
     Indication: ENDOMETRIOSIS
     Route: 048
     Dates: start: 20180831

REACTIONS (6)
  - Abortion spontaneous [Unknown]
  - Arthralgia [Unknown]
  - Depression [Unknown]
  - Feeling abnormal [Unknown]
  - Unevaluable event [Unknown]
  - Nephrolithiasis [Unknown]
